FAERS Safety Report 4965386-8 (Version None)
Quarter: 2006Q1

REPORT INFORMATION
  Report Type: 
  Country: None (occurrence: None)
  Receive Date: 20060201
  Receipt Date: 20051207
  Transmission Date: 20060701
  Serious: No
  Sender: FDA-Public Use
  Company Number: 2005PV005543

PATIENT
  Age: 80 Year
  Sex: Female
  Weight: 90.7194 kg

DRUGS (3)
  1. BYETTA [Suspect]
     Indication: DIABETES MELLITUS NON-INSULIN-DEPENDENT
     Dosage: 5 MCG;BID;SC
     Route: 058
     Dates: start: 20051110, end: 20051128
  2. BYETTA [Suspect]
     Indication: DIABETES MELLITUS NON-INSULIN-DEPENDENT
     Dosage: 5 MCG;BID;SC
     Route: 058
     Dates: start: 20051205
  3. PRANDIN [Concomitant]

REACTIONS (7)
  - BLOOD GLUCOSE DECREASED [None]
  - DIZZINESS [None]
  - MIDDLE INSOMNIA [None]
  - PRURITUS GENERALISED [None]
  - SCAB [None]
  - SKIN NODULE [None]
  - TREMOR [None]
